FAERS Safety Report 6369837-6 (Version None)
Quarter: 2009Q3

REPORT INFORMATION
  Report Type: 
  Country: None (occurrence: None)
  Receive Date: 20090923
  Receipt Date: 20070517
  Transmission Date: 20100115
  Serious: No
  Sender: FDA-Public Use
  Company Number: US-ASTRAZENECA-2006UW11295

PATIENT
  Age: 14494 Day
  Sex: Male
  Weight: 99.3 kg

DRUGS (16)
  1. SEROQUEL [Suspect]
     Dosage: 100 MG TO 700 MG
     Route: 048
     Dates: start: 20010101
  2. ABILIFY [Concomitant]
  3. HALDOL [Concomitant]
  4. RISPERDAL [Concomitant]
  5. ZYPREXA [Concomitant]
  6. ZOLOFT [Concomitant]
     Dosage: 25 MG- 100 MG
  7. TYLENOL (CAPLET) [Concomitant]
     Indication: PAIN
     Dosage: NO. 3 TWO TABLETS P.O.Q. 4H. P.R.N.
     Route: 048
  8. TRAZODONE [Concomitant]
  9. THIAMINE HCL [Concomitant]
     Route: 048
  10. FOLIC ACID [Concomitant]
     Route: 048
  11. ASPIRIN [Concomitant]
  12. PRINIVIL [Concomitant]
  13. LITHIUM [Concomitant]
  14. ATIVAN [Concomitant]
     Route: 048
  15. ZANTAC [Concomitant]
     Route: 048
  16. SYNTHROID [Concomitant]
     Indication: HYPOTHYROIDISM
     Route: 048

REACTIONS (2)
  - DIABETES MELLITUS [None]
  - TYPE 2 DIABETES MELLITUS [None]
